FAERS Safety Report 7492783-1 (Version None)
Quarter: 2011Q2

REPORT INFORMATION
  Report Type: 
  Country: None (occurrence: None)
  Receive Date: 20110519
  Receipt Date: 20110510
  Transmission Date: 20111010
  Serious: Yes (Other)
  Sender: FDA-Public Use
  Company Number: BR-BAYER-2011-039939

PATIENT
  Age: 33 Year
  Sex: Female
  Weight: 53 kg

DRUGS (3)
  1. DECADRON [Concomitant]
     Indication: SINUSITIS
     Dosage: 2 DF, QD
     Route: 048
     Dates: start: 20110504, end: 20110506
  2. TYLENOL SINUS MEDICATION [Concomitant]
     Indication: SINUSITIS
     Dosage: 2 DF, PRN
     Route: 048
     Dates: start: 20110503
  3. AVELOX [Suspect]
     Indication: SINUSITIS
     Dosage: 400 MG, QD
     Route: 048
     Dates: start: 20110504, end: 20110510

REACTIONS (4)
  - DIZZINESS [None]
  - EAR DISCOMFORT [None]
  - NAUSEA [None]
  - LABYRINTHITIS [None]
